FAERS Safety Report 15554414 (Version 1)
Quarter: 2018Q4

REPORT INFORMATION
  Report Type: Spontaneous
  Country: US (occurrence: US)
  Receive Date: 20181026
  Receipt Date: 20181026
  Transmission Date: 20190205
  Serious: Yes (Other)
  Sender: FDA-Public Use
  Company Number: US-SUN PHARMACEUTICAL INDUSTRIES LTD-2018US-189615

PATIENT
  Age: 8 Week
  Sex: Female

DRUGS (2)
  1. HEPARIN [Suspect]
     Active Substance: HEPARIN SODIUM
     Indication: LIGNEOUS CONJUNCTIVITIS
     Dosage: UNK
     Route: 061
  2. CICLOSPORIN [Suspect]
     Active Substance: CYCLOSPORINE
     Indication: LIGNEOUS CONJUNCTIVITIS
     Dosage: UNK
     Route: 061

REACTIONS (1)
  - Disease recurrence [Unknown]
